FAERS Safety Report 10270692 (Version 2)
Quarter: 2014Q3

REPORT INFORMATION
  Report Type: Spontaneous
  Country: US (occurrence: US)
  Receive Date: 20140701
  Receipt Date: 20140731
  Transmission Date: 20150326
  Serious: No
  Sender: FDA-Public Use
  Company Number: US-PFIZER INC-2014175776

PATIENT
  Age: 50 Year
  Sex: Female
  Weight: 76.19 kg

DRUGS (4)
  1. ZOLOFT [Concomitant]
     Active Substance: SERTRALINE HYDROCHLORIDE
     Indication: ANXIETY
     Dosage: UNK
  2. VITAMIN D [Concomitant]
     Active Substance: CHOLECALCIFEROL
     Indication: VITAMIN D DECREASED
     Dosage: UNK
  3. LIPITOR [Suspect]
     Active Substance: ATORVASTATIN CALCIUM
     Dosage: 40 MG, 1X/DAY
     Route: 048
     Dates: start: 201308, end: 20140523
  4. LIPITOR [Suspect]
     Active Substance: ATORVASTATIN CALCIUM
     Indication: BLOOD CHOLESTEROL ABNORMAL
     Dosage: 20 MG, 1X/DAY
     Route: 048
     Dates: start: 200405, end: 201308

REACTIONS (15)
  - Arthralgia [Unknown]
  - Tenderness [Unknown]
  - Asthenia [Unknown]
  - Drug ineffective [Unknown]
  - Contusion [Recovering/Resolving]
  - Muscular weakness [Unknown]
  - Tendon rupture [Not Recovered/Not Resolved]
  - Chromaturia [Unknown]
  - Sinusitis [Unknown]
  - Hypoaesthesia [Recovered/Resolved]
  - Plantar fasciitis [Recovered/Resolved]
  - Paraesthesia [Recovered/Resolved]
  - Carpal tunnel syndrome [Recovered/Resolved]
  - Joint swelling [Unknown]
  - Neck pain [Unknown]

NARRATIVE: CASE EVENT DATE: 2014
